FAERS Safety Report 8953794 (Version 1)
Quarter: 2012Q4

REPORT INFORMATION
  Report Type: 
  Country: US (occurrence: US)
  Receive Date: 20121206
  Receipt Date: 20121206
  Transmission Date: 20130627
  Serious: Yes (Other)
  Sender: FDA-Public Use
  Company Number: US-PFIZER INC-2012304382

PATIENT
  Age: 71 Year
  Sex: Female
  Weight: 90.25 kg

DRUGS (9)
  1. CLINDAMYCIN HCL [Suspect]
     Indication: INFECTION NOS
     Dosage: UNK
  2. CLINDAMYCIN HCL [Suspect]
     Dosage: UNK
     Dates: start: 20121126, end: 20121130
  3. AVAPRO [Concomitant]
     Indication: BLOOD PRESSURE HIGH
     Dosage: 150 mg, 2x/day
  4. CATAPRES [Concomitant]
     Dosage: 80 mg, 2x/day
  5. K-DUR [Concomitant]
     Dosage: UNK
  6. HYDROCHLOROTHIAZIDE [Concomitant]
     Dosage: 25 mg, 1x/day
  7. SYNTHROID [Concomitant]
     Dosage: 88 ug, UNK
  8. WARFARIN [Concomitant]
     Dosage: UNK
  9. COUMADIN [Concomitant]
     Dosage: 4 mg, UNK

REACTIONS (4)
  - Neoplasm [Unknown]
  - Blood pressure decreased [Unknown]
  - Insomnia [Recovered/Resolved]
  - Nervousness [Unknown]
